FAERS Safety Report 20214296 (Version 2)
Quarter: 2022Q3

REPORT INFORMATION
  Report Type: Report from Study
  Country: FR (occurrence: FR)
  Receive Date: 20211221
  Receipt Date: 20220909
  Transmission Date: 20221026
  Serious: Yes (Life-Threatening)
  Sender: FDA-Public Use
  Company Number: FR-SERVIER-S21014071

PATIENT

DRUGS (14)
  1. PEGASPARGASE [Suspect]
     Active Substance: PEGASPARGASE
     Indication: Acute lymphocytic leukaemia
     Dosage: 5000 IU, ON D12 AND D26
     Route: 042
     Dates: start: 20200817, end: 20200901
  2. DAUNORUBICIN [Suspect]
     Active Substance: DAUNORUBICIN
     Indication: Acute lymphocytic leukaemia
     Dosage: 78 MG, ON D 8, 15, 22 AND 29
     Route: 042
     Dates: start: 20200813
  3. DAUNORUBICIN [Suspect]
     Active Substance: DAUNORUBICIN
     Dosage: 78 MG, ON D 8, 15, 22 AND 29
     Route: 042
     Dates: start: 20200820
  4. DAUNORUBICIN [Suspect]
     Active Substance: DAUNORUBICIN
     Dosage: 78 MG, ON D 8, 15, 22 AND 29
     Route: 042
     Dates: start: 20200827
  5. DAUNORUBICIN [Suspect]
     Active Substance: DAUNORUBICIN
     Dosage: 78 MG, ON D 8, 15, 22 AND 29
     Route: 042
     Dates: start: 20200903
  6. VINCRISTINE [Suspect]
     Active Substance: VINCRISTINE
     Indication: Acute lymphocytic leukaemia
     Dosage: 2 MG, ON D 8, 15, 22 AND 29
     Route: 042
     Dates: start: 20200813
  7. VINCRISTINE [Suspect]
     Active Substance: VINCRISTINE
     Dosage: 2 MG, ON D 8, 15, 22 AND 29
     Route: 042
     Dates: start: 20200820
  8. VINCRISTINE [Suspect]
     Active Substance: VINCRISTINE
     Dosage: 2 MG, ON D 8, 15, 22 AND 29
     Route: 042
     Dates: start: 20200827
  9. VINCRISTINE [Suspect]
     Active Substance: VINCRISTINE
     Dosage: 2 MG, ON D 8, 15, 22 AND 29
     Route: 042
     Dates: start: 20200903
  10. CYCLOPHOSPHAMIDE [Suspect]
     Active Substance: CYCLOPHOSPHAMIDE
     Indication: Acute lymphocytic leukaemia
     Dosage: 1960 MG
     Route: 042
     Dates: start: 20200814
  11. METHOTREXATE [Suspect]
     Active Substance: METHOTREXATE
     Indication: Acute lymphocytic leukaemia
     Dosage: 15 MG, ON D13 AND 24
     Route: 037
     Dates: start: 20200818
  12. METHOTREXATE [Suspect]
     Active Substance: METHOTREXATE
     Dosage: 15 MG, ON D13 AND 24
     Route: 037
     Dates: start: 20200831
  13. CYTARABINE [Suspect]
     Active Substance: CYTARABINE
     Indication: Acute lymphocytic leukaemia
     Dosage: 30 MG, D24
     Route: 037
     Dates: start: 20200831
  14. HYDROCORTISONE [Suspect]
     Active Substance: HYDROCORTISONE
     Indication: Acute lymphocytic leukaemia
     Dosage: 15 MG, D24
     Route: 037
     Dates: start: 20200831

REACTIONS (2)
  - Gastrointestinal haemorrhage [Recovered/Resolved]
  - Analgesic therapy [Recovered/Resolved]

NARRATIVE: CASE EVENT DATE: 20200909
